FAERS Safety Report 9024576 (Version 3)
Quarter: 2013Q2

REPORT INFORMATION
  Report Type: Spontaneous
  Country: PL (occurrence: None)
  Receive Date: 20130103
  Receipt Date: 20130402
  Transmission Date: 20140414
  Serious: Yes (Hospitalization)
  Sender: FDA-Public Use
  Company Number: AUR-APL-2012-05616

PATIENT
  Age: 31 Year
  Sex: Female

DRUGS (3)
  1. PAROXETINE (PAROXETINE) [Suspect]
     Indication: PRODUCT USED FOR UNKNOWN INDICATION
     Dosage: 20MG, 1 D UNKNOWN
  2. DIAZEPAM (DIAZEPAM) [Suspect]
     Indication: PRODUCT USED FOR UNKNOWN INDICATION
     Dosage: 2.5 TO 5 MG BEFORE SLEEP, UNKNOWN
     Route: 048
  3. HYDROXYCARBAMIDE [Suspect]
     Indication: PRODUCT USED FOR UNKNOWN INDICATION
     Dosage: 500MG, 1 D, UNKNOWN

REACTIONS (5)
  - Suicide attempt [None]
  - Restlessness [None]
  - Mood altered [None]
  - White blood cell count decreased [None]
  - Intentional overdose [None]
